FAERS Safety Report 13887731 (Version 1)
Quarter: 2017Q3

REPORT INFORMATION
  Report Type: Spontaneous
  Country: US (occurrence: US)
  Receive Date: 20170821
  Receipt Date: 20170821
  Transmission Date: 20171127
  Serious: No
  Sender: FDA-Public Use
  Company Number: US-TEIKOKU PHARMA USA-TPU2017-00428

PATIENT
  Sex: Female
  Weight: 110.32 kg

DRUGS (3)
  1. LIDOCAINE PATCH [Suspect]
     Active Substance: LIDOCAINE
     Indication: ROTATOR CUFF SYNDROME
     Dosage: USE 3 TO 4 PATCHES A DAY 1-2 EVERY TWELVE HOURS WHOLE ONE ON EACH SHOULDER AND 1/2 ON BOTH ARMS
     Dates: start: 2016
  2. BLOOD THINNERS [Concomitant]
     Active Substance: UNSPECIFIED INGREDIENT
  3. ABOUT THIRTY MEDICATIONS [Concomitant]

REACTIONS (2)
  - Inappropriate schedule of drug administration [Unknown]
  - Incorrect dose administered [Unknown]
